FAERS Safety Report 4619109-2 (Version None)
Quarter: 2005Q1

REPORT INFORMATION
  Report Type: 
  Country: None (occurrence: None)
  Receive Date: 20050317
  Receipt Date: 20050317
  Transmission Date: 20050727
  Serious: Yes (Hospitalization)
  Sender: FDA-Public Use
  Company Number: None

PATIENT
  Age: 71 Year
  Sex: Male

DRUGS (1)
  1. NAPROXEN [Suspect]
     Indication: ARTHRITIS
     Dates: start: 20040824, end: 20041205

REACTIONS (5)
  - DUODENAL ULCER [None]
  - GASTRITIS EROSIVE [None]
  - GASTROINTESTINAL HAEMORRHAGE [None]
  - HELICOBACTER PYLORI IDENTIFICATION TEST POSITIVE [None]
  - OESOPHAGITIS [None]
